FAERS Safety Report 16787216 (Version 1)
Quarter: 2019Q3

REPORT INFORMATION
  Report Type: Spontaneous
  Country: US (occurrence: US)
  Receive Date: 20190909
  Receipt Date: 20190909
  Transmission Date: 20191005
  Serious: No
  Sender: FDA-Public Use
  Company Number: US-SA-2019SA247993

PATIENT

DRUGS (2)
  1. CERDELGA [Suspect]
     Active Substance: ELIGLUSTAT
     Dosage: UNK UNK, UNK
     Route: 065
  2. CEREZYME [Suspect]
     Active Substance: IMIGLUCERASE
     Dosage: UNK UNK, UNK
     Route: 065

REACTIONS (1)
  - Laboratory test abnormal [Unknown]
